FAERS Safety Report 15988274 (Version 2)
Quarter: 2019Q2

REPORT INFORMATION
  Report Type: Spontaneous
  Country: JP (occurrence: JP)
  Receive Date: 20190221
  Receipt Date: 20190402
  Transmission Date: 20190711
  Serious: Yes (Death, Other)
  Sender: FDA-Public Use
  Company Number: JP-TAKEDA-2019TJP003835

PATIENT
  Age: 7 Decade
  Sex: Male
  Weight: 56.1 kg

DRUGS (1)
  1. TAKEPRON CAPSULES 15 [Suspect]
     Active Substance: LANSOPRAZOLE
     Indication: GASTROOESOPHAGEAL REFLUX DISEASE
     Dosage: UNK
     Route: 048

REACTIONS (8)
  - Disseminated intravascular coagulation [Unknown]
  - Multiple organ dysfunction syndrome [Unknown]
  - Renal infarct [Unknown]
  - Amyloidosis [Unknown]
  - Splenic infarction [Unknown]
  - Interstitial lung disease [Fatal]
  - Pulmonary alveolar haemorrhage [Unknown]
  - Splenomegaly [Unknown]
